FAERS Safety Report 9557418 (Version 1)
Quarter: 2013Q3

REPORT INFORMATION
  Report Type: Spontaneous
  Country: US (occurrence: None)
  Receive Date: 20130726
  Receipt Date: 20130726
  Transmission Date: 20140515
  Serious: Yes (Hospitalization)
  Sender: FDA-Public Use
  Company Number: UTC-020686

PATIENT
  Age: 44 Year
  Sex: Female
  Weight: 95.5 kg

DRUGS (4)
  1. REMODULIN [Suspect]
     Indication: PULMONARY ARTERIAL HYPERTENSION
     Dates: start: 20110804
  2. REVATIO (SILDENAFIL CITRATE) (UNKNOWN) (SILDENAFIL) [Concomitant]
  3. ASPIRIN [Concomitant]
  4. TRACLEER (BOSENTAN) [Concomitant]

REACTIONS (2)
  - Device related infection [None]
  - Injection site rash [None]
